FAERS Safety Report 5534191-6 (Version None)
Quarter: 2007Q4

REPORT INFORMATION
  Report Type: 
  Country: None (occurrence: None)
  Receive Date: 20071205
  Receipt Date: 20071129
  Transmission Date: 20080405
  Serious: Yes (Congenital Anomaly, Other)
  Sender: FDA-Public Use
  Company Number: GB-AVENTIS-200715734GDDC

PATIENT
  Age: 28 Year
  Sex: Female
  Weight: 60 kg

DRUGS (2)
  1. CLOMID [Suspect]
     Route: 064
     Dates: start: 20060801, end: 20060901
  2. PRIMACOR                           /00995601/ [Concomitant]
     Route: 048
     Dates: start: 20060801, end: 20061101

REACTIONS (2)
  - CONGENITAL ANOMALY [None]
  - CRANIOSYNOSTOSIS [None]
